FAERS Safety Report 16232030 (Version 1)
Quarter: 2019Q2

REPORT INFORMATION
  Report Type: Spontaneous
  Country: AE (occurrence: AE)
  Receive Date: 20190424
  Receipt Date: 20190424
  Transmission Date: 20190711
  Serious: Yes (Hospitalization, Other)
  Sender: FDA-Public Use
  Company Number: AE-ACCORD-122718

PATIENT
  Sex: Female
  Weight: 3.44 kg

DRUGS (4)
  1. VINCRISTINE [Suspect]
     Active Substance: VINCRISTINE
     Indication: HEPATOBLASTOMA
     Dosage: EVERY 21 DAYS OVER SIX CYCLES
  2. FLUOROURACIL. [Suspect]
     Active Substance: FLUOROURACIL
     Indication: HEPATOBLASTOMA
     Dosage: EVERY 21 DAYS OVER SIX CYCLES
  3. DOXORUBICIN [Suspect]
     Active Substance: DOXORUBICIN
     Indication: HEPATOBLASTOMA
     Dosage: EVERY 21 DAYS OVER SIX CYCLES
  4. CISPLATIN. [Suspect]
     Active Substance: CISPLATIN
     Indication: HEPATOBLASTOMA
     Dosage: EVERY 21 DAYS OVER SIX CYCLES

REACTIONS (2)
  - Pyrexia [Unknown]
  - Febrile neutropenia [Unknown]
